FAERS Safety Report 21848050 (Version 1)
Quarter: 2023Q1

REPORT INFORMATION
  Report Type: Spontaneous
  Country: US (occurrence: US)
  Receive Date: 20230111
  Receipt Date: 20230111
  Transmission Date: 20230417
  Serious: Yes (Hospitalization)
  Sender: FDA-Public Use
  Company Number: US-MYLANLABS-2022M1141253

PATIENT
  Sex: Male

DRUGS (13)
  1. DOXYCYCLINE [Suspect]
     Active Substance: DOXYCYCLINE
     Indication: Venolymphatic malformation
     Dosage: 150 MILLIGRAM, ON DAY 6 OF LIFE
     Route: 065
  2. DOXYCYCLINE [Suspect]
     Active Substance: DOXYCYCLINE
     Dosage: UNK, 4X150MG- DAY 15-29
     Route: 065
  3. DOXYCYCLINE [Suspect]
     Active Substance: DOXYCYCLINE
     Dosage: 300 MILLIGRAM, ON DAY 33
     Route: 065
  4. DOXYCYCLINE [Suspect]
     Active Substance: DOXYCYCLINE
     Dosage: UNK, 3X300MG- AT 1.5 MONTH
     Route: 065
  5. DOXYCYCLINE [Suspect]
     Active Substance: DOXYCYCLINE
     Dosage: UNK, 10X300MG- AT AROUND 2 MONTHS
     Route: 065
  6. DOXYCYCLINE [Suspect]
     Active Substance: DOXYCYCLINE
     Dosage: UNK, 7X300MG (AT AROUND 3 MONTHS)
     Route: 065
  7. SIROLIMUS [Suspect]
     Active Substance: SIROLIMUS
     Indication: Venolymphatic malformation
     Dosage: 0.8 MILLIGRAM/SQ. METER, QD (0.14MG ORAL SOLUTION; ON DAY 8 OF LIFE)
     Route: 048
  8. SIROLIMUS [Suspect]
     Active Substance: SIROLIMUS
     Dosage: 0.18 MILLIGRAM, AT 2 MONTH
     Route: 048
  9. SIROLIMUS [Suspect]
     Active Substance: SIROLIMUS
     Dosage: 0.22 MILLIGRAM, DAY 75
     Route: 048
  10. SIROLIMUS [Suspect]
     Active Substance: SIROLIMUS
     Dosage: 0.3 MILLIGRAM, QD, DAY 83
     Route: 048
  11. SIROLIMUS [Suspect]
     Active Substance: SIROLIMUS
     Dosage: 0.4 MILLIGRAM, QD, DAY 118
     Route: 048
  12. BLEOMYCIN [Suspect]
     Active Substance: BLEOMYCIN SULFATE
     Indication: Venolymphatic malformation
     Dosage: UNK, 15 UNITS; TWO INJECTIONS (TRANSMUCOSAL ROUTE)
     Route: 065
  13. PENTAMIDINE [Concomitant]
     Active Substance: PENTAMIDINE
     Indication: Antifungal prophylaxis
     Dosage: UNK
     Route: 042

REACTIONS (2)
  - Drug ineffective for unapproved indication [Unknown]
  - Off label use [Unknown]
